FAERS Safety Report 13720980 (Version 1)
Quarter: 2017Q3

REPORT INFORMATION
  Report Type: Spontaneous
  Country: US (occurrence: US)
  Receive Date: 20170706
  Receipt Date: 20170706
  Transmission Date: 20171127
  Serious: No
  Sender: FDA-Public Use
  Company Number: US-ENDO PHARMACEUTICALS INC-2017-002614

PATIENT
  Sex: Female

DRUGS (1)
  1. GILDESS 1/20 [Suspect]
     Active Substance: ETHINYL ESTRADIOL\NORETHINDRONE ACETATE
     Indication: CONTRACEPTION
     Dosage: UNK UNK, UNKNOWN
     Route: 065
     Dates: start: 20160503

REACTIONS (3)
  - Unintended pregnancy [Unknown]
  - Anxiety [Unknown]
  - Emotional disorder [Unknown]

NARRATIVE: CASE EVENT DATE: 201608
